FAERS Safety Report 11597880 (Version 2)
Quarter: 2016Q3

REPORT INFORMATION
  Report Type: Spontaneous
  Country: US (occurrence: US)
  Receive Date: 20151006
  Receipt Date: 20160927
  Transmission Date: 20161109
  Serious: Yes (Hospitalization)
  Sender: FDA-Public Use
  Company Number: US-JNJFOC-20150918442

PATIENT
  Age: 51 Year
  Sex: Female

DRUGS (4)
  1. TYLENOL [Concomitant]
     Active Substance: ACETAMINOPHEN
     Indication: ANALGESIC THERAPY
     Route: 065
     Dates: start: 20140912
  2. LEVAQUIN [Suspect]
     Active Substance: LEVOFLOXACIN
     Indication: NEPHROLITHIASIS
     Route: 042
     Dates: start: 20140914, end: 20140916
  3. LEVAQUIN [Suspect]
     Active Substance: LEVOFLOXACIN
     Indication: URINARY TRACT INFECTION
     Route: 042
     Dates: start: 20140914, end: 20140916
  4. TYLENOL [Concomitant]
     Active Substance: ACETAMINOPHEN
     Indication: NEPHROLITHIASIS
     Route: 065
     Dates: start: 20140912

REACTIONS (16)
  - Depression [Unknown]
  - Eye pain [Unknown]
  - Insomnia [Unknown]
  - Gastrointestinal disorder [Unknown]
  - Rash [Unknown]
  - Tendonitis [Unknown]
  - Arthropathy [Unknown]
  - Asthenia [Unknown]
  - Toothache [Unknown]
  - Alopecia [Unknown]
  - Bursitis [Unknown]
  - Chest pain [Unknown]
  - Polyneuropathy [Not Recovered/Not Resolved]
  - Headache [Unknown]
  - Amnesia [Unknown]
  - Balance disorder [Unknown]

NARRATIVE: CASE EVENT DATE: 20140914
